FAERS Safety Report 4908948-6 (Version None)
Quarter: 2006Q1

REPORT INFORMATION
  Report Type: 
  Country: None (occurrence: None)
  Receive Date: 20060209
  Receipt Date: 20060201
  Transmission Date: 20060701
  Serious: Yes (Other)
  Sender: FDA-Public Use
  Company Number: 2006016079

PATIENT
  Sex: Male

DRUGS (1)
  1. UNISOM [Suspect]
     Indication: INTENTIONAL OVERDOSE
     Dosage: 40 GELS ONCE, ORAL
     Route: 048
     Dates: start: 20060130, end: 20060130

REACTIONS (5)
  - CONFUSIONAL STATE [None]
  - FATIGUE [None]
  - LETHARGY [None]
  - SOMNOLENCE [None]
  - VOMITING [None]
